FAERS Safety Report 6806163-2 (Version None)
Quarter: 2010Q2

REPORT INFORMATION
  Report Type: 
  Country: None (occurrence: None)
  Receive Date: 20100629
  Receipt Date: 20071212
  Transmission Date: 20101027
  Serious: No
  Sender: FDA-Public Use
  Company Number: US-PFIZER INC-2007104341

PATIENT
  Sex: Male
  Weight: 102.27 kg

DRUGS (3)
  1. SPIRONOLACTONE [Suspect]
     Indication: OEDEMA PERIPHERAL
     Dates: start: 20071107, end: 20071201
  2. LISINOPRIL [Concomitant]
     Indication: HYPERTENSION
  3. ALL OTHER THERAPEUTIC PRODUCTS [Concomitant]

REACTIONS (1)
  - VISION BLURRED [None]
